FAERS Safety Report 7616695-5 (Version None)
Quarter: 2011Q3

REPORT INFORMATION
  Report Type: 
  Country: None (occurrence: None)
  Receive Date: 20110717
  Receipt Date: 20110711
  Transmission Date: 20111222
  Serious: Yes (Hospitalization)
  Sender: FDA-Public Use
  Company Number: PHHY2011DE39707

PATIENT
  Sex: Male
  Weight: 68 kg

DRUGS (5)
  1. BISOPROLOL [Concomitant]
     Dosage: 10 MG/DAY
     Route: 048
     Dates: start: 20100601
  2. HYDROCHLOROTHIAZIDE [Concomitant]
     Dosage: 12.5 MG/DAY
     Route: 048
     Dates: start: 20110301
  3. AMLODIPINE [Concomitant]
     Dosage: 10 MG/DAY
     Route: 048
     Dates: start: 20100601
  4. ILARIS [Suspect]
     Indication: CRYOPYRIN ASSOCIATED PERIODIC SYNDROME
     Dosage: 150 MG FOR EVERY 8TH WEEK
     Route: 058
     Dates: start: 20091110
  5. LOSARTAN [Concomitant]
     Dosage: 100 MG/DAY
     Route: 048
     Dates: start: 20100701

REACTIONS (1)
  - CELLULITIS [None]
